FAERS Safety Report 9503832 (Version 1)
Quarter: 2013Q3

REPORT INFORMATION
  Report Type: Spontaneous
  Country: US (occurrence: None)
  Receive Date: 20130905
  Receipt Date: 20130905
  Transmission Date: 20140515
  Serious: Yes (Disabling)
  Sender: FDA-Public Use
  Company Number: None

PATIENT
  Age: 40 Year
  Sex: Female

DRUGS (1)
  1. LEVAQUIN [Suspect]
     Indication: SINUSITIS
     Route: 048
     Dates: start: 20130821, end: 20130829

REACTIONS (5)
  - Tendon pain [None]
  - Arthralgia [None]
  - Myalgia [None]
  - Muscular weakness [None]
  - Activities of daily living impaired [None]
